FAERS Safety Report 8400857 (Version 2)
Quarter: 2013Q1

REPORT INFORMATION
  Report Type: Spontaneous
  Country: US (occurrence: US)
  Receive Date: 20120210
  Receipt Date: 20130219
  Transmission Date: 20140127
  Serious: No
  Sender: FDA-Public Use
  Company Number: US-BRISTOL-MYERS SQUIBB COMPANY-16242083

PATIENT
  Age: 68 Year
  Sex: Female
  Weight: 80.27 kg

DRUGS (3)
  1. ORENCIA [Suspect]
     Indication: RHEUMATOID ARTHRITIS
     Dosage: SECOND INF RECEIVED ON 2DEC2011?NO OF INF:4?LAST INF:13APR12.
     Route: 042
     Dates: start: 20111118
  2. ABREVA [Concomitant]
  3. REMICADE [Concomitant]

REACTIONS (14)
  - Headache [Recovered/Resolved]
  - Dizziness [Unknown]
  - Emotional disorder [Unknown]
  - Thinking abnormal [Unknown]
  - Hypertension [Unknown]
  - Vision blurred [Unknown]
  - Haemorrhage [Unknown]
  - Contusion [Not Recovered/Not Resolved]
  - Nervousness [Unknown]
  - Musculoskeletal stiffness [Recovered/Resolved]
  - Nausea [Recovered/Resolved]
  - Arthropathy [Not Recovered/Not Resolved]
  - Fatigue [Unknown]
  - Epistaxis [Unknown]
